FAERS Safety Report 6392118-1 (Version None)
Quarter: 2009Q4

REPORT INFORMATION
  Report Type: 
  Country: None (occurrence: None)
  Receive Date: 20091007
  Receipt Date: 20090923
  Transmission Date: 20100525
  Serious: Yes (Death, Hospitalization, Other)
  Sender: FDA-Public Use
  Company Number: US-ELI_LILLY_AND_COMPANY-US200909003138

PATIENT
  Age: 71 Year
  Sex: Male
  Weight: 90.703 kg

DRUGS (3)
  1. EFFIENT [Suspect]
     Indication: PERIPHERAL ARTERY ANGIOPLASTY
     Dosage: 10 MG, DAILY (1/D)
     Dates: start: 20090814, end: 20090824
  2. PLAVIX [Concomitant]
     Dosage: 300 MG, UNK
     Dates: start: 20090813, end: 20090814
  3. ASPIRIN [Concomitant]
     Dosage: 81 MG, UNK

REACTIONS (9)
  - CARDIOGENIC SHOCK [None]
  - CHRONIC HEPATIC FAILURE [None]
  - CORONARY ARTERY DISEASE [None]
  - GASTROINTESTINAL HAEMORRHAGE [None]
  - HEPATIC FAILURE [None]
  - INTENTIONAL DRUG MISUSE [None]
  - ISCHAEMIC HEPATITIS [None]
  - MEDICATION ERROR [None]
  - MULTI-ORGAN FAILURE [None]
